FAERS Safety Report 18379281 (Version 1)
Quarter: 2020Q4

REPORT INFORMATION
  Report Type: Spontaneous
  Country: US (occurrence: US)
  Receive Date: 20201013
  Receipt Date: 20201013
  Transmission Date: 20210114
  Serious: No
  Sender: FDA-Public Use
  Company Number: US-ENDO PHARMACEUTICALS INC-2019-110459

PATIENT
  Sex: Female

DRUGS (1)
  1. QUESTRAN [Suspect]
     Active Substance: CHOLESTYRAMINE
     Indication: ADVERSE REACTION
     Dosage: UNK UNKNOWN, UNKNOWN
     Route: 065

REACTIONS (3)
  - Illness [Unknown]
  - Therapeutic response unexpected [Unknown]
  - Intentional product misuse [Unknown]
